FAERS Safety Report 17255558 (Version 3)
Quarter: 2020Q2

REPORT INFORMATION
  Report Type: Report from Study
  Country: US (occurrence: US)
  Receive Date: 20200110
  Receipt Date: 20200415
  Transmission Date: 20200713
  Serious: No
  Sender: FDA-Public Use
  Company Number: US-ASTRAZENECA-2020SE01328

PATIENT
  Sex: Female

DRUGS (4)
  1. BUDESONIDE. [Suspect]
     Active Substance: BUDESONIDE
     Dosage: UNKNOWN
     Route: 055
  2. ALBUTEROL. [Concomitant]
     Active Substance: ALBUTEROL
  3. SYNAGIS [Suspect]
     Active Substance: PALIVIZUMAB
     Indication: DYSPLASIA
     Route: 030
     Dates: start: 20191231
  4. SYNAGIS [Suspect]
     Active Substance: PALIVIZUMAB
     Indication: BONE MARROW FAILURE
     Route: 030
     Dates: start: 20191231

REACTIONS (2)
  - Respiratory syncytial virus infection [Not Recovered/Not Resolved]
  - Malaise [Not Recovered/Not Resolved]

NARRATIVE: CASE EVENT DATE: 20191225
